FAERS Safety Report 9357705 (Version 1)
Quarter: 2013Q2

REPORT INFORMATION
  Report Type: Spontaneous
  Country: US (occurrence: None)
  Receive Date: 20130619
  Receipt Date: 20130619
  Transmission Date: 20140414
  Serious: Yes (Death, Life-Threatening, Hospitalization)
  Sender: FDA-Public Use
  Company Number: None

PATIENT
  Age: 68 Year
  Sex: Male
  Weight: 89.8 kg

DRUGS (1)
  1. BLEOMYCIN [Suspect]
     Dates: start: 20130201, end: 20130417

REACTIONS (2)
  - Pulmonary fibrosis [None]
  - Pulmonary toxicity [None]
